FAERS Safety Report 7528612-7 (Version None)
Quarter: 2011Q2

REPORT INFORMATION
  Report Type: 
  Country: None (occurrence: None)
  Receive Date: 20110531
  Receipt Date: 20110519
  Transmission Date: 20111010
  Serious: Yes (Other)
  Sender: FDA-Public Use
  Company Number: 2011SP001682

PATIENT
  Sex: Male

DRUGS (2)
  1. LUNESTA [Suspect]
     Indication: SLEEP DISORDER
     Dosage: 3 MG;HS;ORAL
     Route: 048
  2. CARDIAC THERAPY [Concomitant]

REACTIONS (5)
  - INSOMNIA [None]
  - MYOCARDIAL INFARCTION [None]
  - FATIGUE [None]
  - DRUG EFFECT DECREASED [None]
  - SOMNOLENCE [None]
